FAERS Safety Report 4954683-8 (Version None)
Quarter: 2006Q1

REPORT INFORMATION
  Report Type: 
  Country: None (occurrence: None)
  Receive Date: 20060327
  Receipt Date: 20060125
  Transmission Date: 20060701
  Serious: Yes (Other)
  Sender: FDA-Public Use
  Company Number: DE-AMGEN-UK166414

PATIENT
  Sex: Female
  Weight: 85 kg

DRUGS (11)
  1. ARANESP [Suspect]
     Indication: RENAL FAILURE CHRONIC
     Route: 058
     Dates: start: 20041208
  2. DOSS [Concomitant]
     Dates: start: 20021220
  3. OMEPRAL [Concomitant]
     Dates: start: 20040114
  4. SIMVASTATIN [Concomitant]
     Dates: start: 20040804
  5. FERROUS SULFATE TAB [Concomitant]
     Dates: start: 20041020
  6. TORSEMIDE [Concomitant]
     Dates: start: 20050119
  7. BISOPROLOL [Concomitant]
     Dates: start: 20060222
  8. ATACAND [Concomitant]
     Dates: start: 20051214
  9. ROXITHROMYCIN [Concomitant]
     Dates: start: 20060103
  10. DOXAZOSIN [Concomitant]
     Dates: start: 20060222
  11. FOSAMAX [Concomitant]
     Dates: start: 20060310

REACTIONS (4)
  - ANAEMIA [None]
  - BONE MARROW FAILURE [None]
  - NAUSEA [None]
  - RENAL OSTEODYSTROPHY [None]
